FAERS Safety Report 21712309 (Version 1)
Quarter: 2022Q4

REPORT INFORMATION
  Report Type: Spontaneous
  Country: FR (occurrence: FR)
  Receive Date: 20221212
  Receipt Date: 20221212
  Transmission Date: 20230112
  Serious: Yes (Other)
  Sender: FDA-Public Use
  Company Number: FR-JNJFOC-20221214017

PATIENT

DRUGS (1)
  1. NICORETTE [Suspect]
     Active Substance: NICOTINE
     Indication: Smoking cessation therapy
     Dosage: 20 TO 25 GUMS A DAY
     Route: 048

REACTIONS (2)
  - Incorrect product administration duration [Not Recovered/Not Resolved]
  - Drug dependence [Not Recovered/Not Resolved]
